FAERS Safety Report 13305956 (Version 1)
Quarter: 2017Q1

REPORT INFORMATION
  Report Type: Spontaneous
  Country: US (occurrence: US)
  Receive Date: 20170308
  Receipt Date: 20170308
  Transmission Date: 20170428
  Serious: Yes (Hospitalization, Other)
  Sender: FDA-Public Use
  Company Number: US-JNJFOC-20170227533

PATIENT

DRUGS (5)
  1. BORTEZOMIB [Concomitant]
     Active Substance: BORTEZOMIB
  2. DARZALEX [Suspect]
     Active Substance: DARATUMUMAB
     Indication: PRODUCT USED FOR UNKNOWN INDICATION
     Dosage: IN 500ML, SPLIT OVER TWO DAYS
     Route: 042
  3. DARZALEX [Suspect]
     Active Substance: DARATUMUMAB
     Indication: PRODUCT USED FOR UNKNOWN INDICATION
     Route: 042
  4. AMBIEN [Concomitant]
     Active Substance: ZOLPIDEM TARTRATE
     Indication: ANXIETY
  5. XANAX [Concomitant]
     Active Substance: ALPRAZOLAM
     Indication: ANXIETY

REACTIONS (4)
  - Confusional state [Unknown]
  - Amnesia [Unknown]
  - Infusion related reaction [Recovered/Resolved]
  - Disorientation [Unknown]
